FAERS Safety Report 16656213 (Version 1)
Quarter: 2019Q3

REPORT INFORMATION
  Report Type: Spontaneous
  Country: FR (occurrence: FR)
  Receive Date: 20190801
  Receipt Date: 20190801
  Transmission Date: 20191004
  Serious: Yes (Life-Threatening)
  Sender: FDA-Public Use
  Company Number: FR-SA-2019SA205492

PATIENT
  Age: 79 Year
  Sex: Male
  Weight: 55.6 kg

DRUGS (4)
  1. MIRTAZAPINE. [Suspect]
     Active Substance: MIRTAZAPINE
     Indication: PRODUCT USED FOR UNKNOWN INDICATION
     Dosage: 15 MG, QD
     Route: 048
  2. ILOPROST TROMETAMOL [Suspect]
     Active Substance: ILOPROST TROMETHAMINE
     Indication: PERIPHERAL ISCHAEMIA
     Dosage: 11.5 UG, QD
     Route: 041
     Dates: start: 20190605, end: 20190610
  3. KARDEGIC [Suspect]
     Active Substance: ASPIRIN DL-LYSINE
     Indication: PRODUCT USED FOR UNKNOWN INDICATION
     Dosage: 75 MG, QD
     Route: 048
  4. LOVENOX [Suspect]
     Active Substance: ENOXAPARIN SODIUM
     Indication: PRODUCT USED FOR UNKNOWN INDICATION
     Dosage: 0.6 ML, QD
     Route: 058
     Dates: start: 20190604, end: 20190610

REACTIONS (2)
  - Confusional state [Recovering/Resolving]
  - Subdural haematoma [Not Recovered/Not Resolved]

NARRATIVE: CASE EVENT DATE: 20190609
